FAERS Safety Report 7817199-7 (Version None)
Quarter: 2011Q4

REPORT INFORMATION
  Report Type: 
  Country: None (occurrence: None)
  Receive Date: 20111017
  Receipt Date: 20111017
  Transmission Date: 20120403
  Serious: No
  Sender: FDA-Public Use
  Company Number: None

PATIENT
  Age: 65 Year
  Sex: Female
  Weight: 79.378 kg

DRUGS (1)
  1. VIMOVO [Suspect]
     Indication: RHEUMATOID ARTHRITIS
     Dosage: 500-20MG
     Route: 048
     Dates: start: 20111013, end: 20111015

REACTIONS (5)
  - ABDOMINAL PAIN [None]
  - VOMITING [None]
  - PRODUCT QUALITY ISSUE [None]
  - ECONOMIC PROBLEM [None]
  - MALAISE [None]
